FAERS Safety Report 12117795 (Version 7)
Quarter: 2017Q4

REPORT INFORMATION
  Report Type: Report from Study
  Country: BR (occurrence: BR)
  Receive Date: 20160226
  Receipt Date: 20171227
  Transmission Date: 20180320
  Serious: Yes (Hospitalization, Other)
  Sender: FDA-Public Use
  Company Number: BR-ROCHE-1533893

PATIENT
  Age: 54 Year
  Sex: Female
  Weight: 48 kg

DRUGS (27)
  1. AZATHIOPRINE. [Concomitant]
     Active Substance: AZATHIOPRINE
     Route: 065
  2. HYDROXYCHLOROQUINE [Concomitant]
     Active Substance: HYDROXYCHLOROQUINE
  3. HYDROXYCHLOROQUINE [Concomitant]
     Active Substance: HYDROXYCHLOROQUINE
  4. IMURAN [Concomitant]
     Active Substance: AZATHIOPRINE
     Indication: SYSTEMIC LUPUS ERYTHEMATOSUS
     Route: 048
     Dates: start: 2014
  5. REUQUINOL [Concomitant]
     Active Substance: HYDROXYCHLOROQUINE SULFATE
     Route: 065
  6. LEVOID [Concomitant]
     Active Substance: LEVOTHYROXINE
     Indication: TUBERCULOSIS
     Route: 065
  7. PREDNISONE. [Concomitant]
     Active Substance: PREDNISONE
     Indication: SYSTEMIC LUPUS ERYTHEMATOSUS
     Route: 048
  8. AZATHIOPRINE. [Concomitant]
     Active Substance: AZATHIOPRINE
     Route: 065
  9. LEVOTHYROXINE. [Concomitant]
     Active Substance: LEVOTHYROXINE
     Route: 065
  10. REUQUINOL [Concomitant]
     Active Substance: HYDROXYCHLOROQUINE SULFATE
     Route: 065
  11. PREDNISONE. [Concomitant]
     Active Substance: PREDNISONE
     Route: 048
     Dates: start: 2014
  12. ESOMEPRAZOLE [Concomitant]
     Active Substance: ESOMEPRAZOLE
     Route: 065
  13. LEVOTHYROXINE. [Concomitant]
     Active Substance: LEVOTHYROXINE
  14. DAPSONA [Suspect]
     Active Substance: DAPSONE
     Indication: SYSTEMIC LUPUS ERYTHEMATOSUS
     Route: 048
     Dates: start: 2016, end: 2016
  15. MESALAZINE [Concomitant]
     Active Substance: MESALAMINE
     Route: 065
  16. IVIG [Concomitant]
     Active Substance: HUMAN IMMUNOGLOBULIN G
     Indication: SYSTEMIC LUPUS ERYTHEMATOSUS
     Route: 042
  17. MABTHERA [Suspect]
     Active Substance: RITUXIMAB
     Dosage: 1000 + 1000 MG
     Route: 042
  18. DAPSONA [Suspect]
     Active Substance: DAPSONE
     Route: 048
     Dates: start: 201605, end: 201606
  19. LEVOID [Concomitant]
     Active Substance: LEVOTHYROXINE
     Indication: HYPOTHYROIDISM
  20. ESOMEPRAZOLE [Concomitant]
     Active Substance: ESOMEPRAZOLE
     Route: 065
  21. LEVOTHYROXINE. [Concomitant]
     Active Substance: LEVOTHYROXINE
  22. PREDNISONE. [Concomitant]
     Active Substance: PREDNISONE
  23. DEPURA [Concomitant]
     Active Substance: CHOLECALCIFEROL
     Route: 065
  24. MOTILIUM [Concomitant]
     Active Substance: DOMPERIDONE
     Dosage: BEFORE THE MEALS
     Route: 065
  25. PREDNISONE. [Concomitant]
     Active Substance: PREDNISONE
  26. MABTHERA [Suspect]
     Active Substance: RITUXIMAB
     Indication: RHEUMATOID ARTHRITIS
     Dosage: RECEIVED 7 CYCLES?1000 + 1000 MG
     Route: 042
     Dates: start: 20110921
  27. MABTHERA [Suspect]
     Active Substance: RITUXIMAB
     Indication: SYSTEMIC LUPUS ERYTHEMATOSUS
     Route: 042
     Dates: start: 2014

REACTIONS (17)
  - Lung infection [Recovered/Resolved]
  - Drug-induced liver injury [Recovered/Resolved]
  - Systemic lupus erythematosus [Recovered/Resolved]
  - Herpes zoster [Unknown]
  - Pneumonia [Unknown]
  - Tuberculosis [Unknown]
  - Systemic lupus erythematosus [Unknown]
  - Thrombocytopenia [Recovered/Resolved]
  - Biliary dyskinesia [Recovered/Resolved]
  - Pain [Unknown]
  - Fall [Unknown]
  - Off label use [Unknown]
  - Spinal fracture [Unknown]
  - Influenza [Recovering/Resolving]
  - Intentional product use issue [Unknown]
  - Hypersensitivity [Recovered/Resolved]
  - Gastrointestinal disorder [Recovered/Resolved]

NARRATIVE: CASE EVENT DATE: 201412
